FAERS Safety Report 13053344 (Version 1)
Quarter: 2016Q4

REPORT INFORMATION
  Report Type: Spontaneous
  Country: US (occurrence: US)
  Receive Date: 20161222
  Receipt Date: 20161222
  Transmission Date: 20170207
  Serious: No
  Sender: FDA-Public Use
  Company Number: US-009507513-1612USA001317

PATIENT
  Sex: Female
  Weight: 86.17 kg

DRUGS (1)
  1. NUVARING [Suspect]
     Active Substance: ETHINYL ESTRADIOL\ETONOGESTREL
     Dosage: 0.12/0.015MG PER DAY, THREE WEEKS IN, FOLLOWED BY A ONE-WEEK RING-FREE INTERVAL
     Route: 067
     Dates: start: 20161129

REACTIONS (3)
  - No adverse event [Unknown]
  - Drug dose omission [Unknown]
  - Product colour issue [Unknown]

NARRATIVE: CASE EVENT DATE: 2016
